FAERS Safety Report 23363275 (Version 1)
Quarter: 2024Q1

REPORT INFORMATION
  Report Type: Spontaneous
  Country: None (occurrence: US)
  Receive Date: 20240103
  Receipt Date: 20240103
  Transmission Date: 20240409
  Serious: No
  Sender: FDA-Public Use
  Company Number: US-Kindeva Drug Delivery L.P.-2150097

PATIENT
  Age: 75 Year
  Sex: Female

DRUGS (1)
  1. ALBUTEROL SULFATE [Suspect]
     Active Substance: ALBUTEROL SULFATE
     Indication: Chronic obstructive pulmonary disease
     Route: 055

REACTIONS (3)
  - Incorrect dose administered by device [Unknown]
  - Cough [Unknown]
  - Drug delivery system malfunction [Unknown]
